FAERS Safety Report 7612994-1 (Version None)
Quarter: 2011Q3

REPORT INFORMATION
  Report Type: 
  Country: None (occurrence: None)
  Receive Date: 20110713
  Receipt Date: 20110621
  Transmission Date: 20111222
  Serious: No
  Sender: FDA-Public Use
  Company Number: US-005626

PATIENT
  Sex: Male
  Weight: 95.709 kg

DRUGS (4)
  1. DEGARELIX 120 MG [Suspect]
     Indication: PROSTATE CANCER
     Dosage: (120 MG INJECTION X 2 DEEP SUBCUTANEOUSLY SUBCUTANEOUS)
     Route: 058
     Dates: start: 20110617
  2. ATACAND [Concomitant]
  3. NORVASC [Concomitant]
  4. LIPITOR [Concomitant]

REACTIONS (3)
  - INJECTION SITE NODULE [None]
  - INJECTION SITE SWELLING [None]
  - INJECTION SITE ERYTHEMA [None]
